FAERS Safety Report 5149173-6 (Version None)
Quarter: 2006Q4

REPORT INFORMATION
  Report Type: 
  Country: None (occurrence: None)
  Receive Date: 20061113
  Receipt Date: 20060823
  Transmission Date: 20070319
  Serious: No
  Sender: FDA-Public Use
  Company Number: US-GLAXOSMITHKLINE-A0617814A

PATIENT
  Age: 66 Year
  Sex: Female

DRUGS (2)
  1. COREG [Suspect]
     Indication: HEART RATE INCREASED
     Dosage: 6.25MG PER DAY
     Route: 048
     Dates: start: 20060630
  2. NO CONCURRENT MEDICATION [Concomitant]

REACTIONS (1)
  - VISUAL DISTURBANCE [None]
